FAERS Safety Report 14061568 (Version 3)
Quarter: 2019Q2

REPORT INFORMATION
  Report Type: Spontaneous
  Country: DE (occurrence: DE)
  Receive Date: 20171009
  Receipt Date: 20190518
  Transmission Date: 20190711
  Serious: Yes (Other)
  Sender: FDA-Public Use
  Company Number: DE-AUROBINDO-AUR-APL-2017-41416

PATIENT

DRUGS (8)
  1. CAFFEINE. [Suspect]
     Active Substance: CAFFEINE
     Indication: PROPHYLAXIS
     Dosage: UNK
     Route: 048
  2. LITHIUM. [Suspect]
     Active Substance: LITHIUM
     Indication: HEADACHE
     Dosage: 900 MILLIGRAM, DAILY
     Route: 065
  3. MELATONIN [Suspect]
     Active Substance: MELATONIN
     Indication: HEADACHE
     Dosage: 2 MG, UNK
     Route: 065
  4. FLUNARIZINE [Suspect]
     Active Substance: FLUNARIZINE
     Indication: HEADACHE
     Dosage: 10 MG, DAILY
     Route: 065
  5. TAPENTADOL [Suspect]
     Active Substance: TAPENTADOL
     Indication: HEADACHE
     Dosage: 200 MG, DAILY
     Route: 048
  6. LITHIUM. [Suspect]
     Active Substance: LITHIUM
     Indication: PROPHYLAXIS
  7. INDOMETHACIN. [Suspect]
     Active Substance: INDOMETHACIN
     Indication: PROPHYLAXIS
     Dosage: 200 MILLIGRAM, DAILY
     Route: 065
  8. TOPIRAMATE. [Suspect]
     Active Substance: TOPIRAMATE
     Indication: HEADACHE
     Dosage: 250 MILLIGRAM, ONCE A DAY
     Route: 048

REACTIONS (3)
  - Cognitive disorder [Unknown]
  - Off label use [Unknown]
  - Drug ineffective [Unknown]
